FAERS Safety Report 10648349 (Version 3)
Quarter: 2015Q1

REPORT INFORMATION
  Report Type: Spontaneous
  Country: US (occurrence: None)
  Receive Date: 20141210
  Receipt Date: 20150205
  Transmission Date: 20150720
  Serious: Yes (Congenital Anomaly, Other)
  Sender: FDA-Public Use
  Company Number: US2014GSK032585

PATIENT
  Age: 1 Day
  Sex: Female
  Weight: 2.9 kg

DRUGS (5)
  1. ZIDOVUDINE. [Suspect]
     Active Substance: ZIDOVUDINE
     Indication: HIV INFECTION
     Dosage: 100 MG, U, TRANSPLACENTAL?
     Route: 064
     Dates: start: 20120920, end: 20120920
  2. REYATAZ [Suspect]
     Active Substance: ATAZANAVIR SULFATE
     Indication: HIV INFECTION
     Route: 064
     Dates: start: 20120416, end: 20120920
  3. RITONAVIR. [Suspect]
     Active Substance: RITONAVIR
     Indication: HIV INFECTION
     Dosage: 1 DF, UNK, TRANSPLACENTAL?
     Route: 064
     Dates: start: 20120416
  4. SULFAMETHOXAZOLE AND TRIMETHOPRIM [Concomitant]
     Active Substance: SULFAMETHOXAZOLE\TRIMETHOPRIM
  5. ABACAVIR SULFATE + LAMIVUDINE [Suspect]
     Active Substance: ABACAVIR SULFATE\LAMIVUDINE
     Indication: HIV INFECTION
     Dosage: 2 DF, UNK, TRANSPLACENTAL?
     Route: 064
     Dates: start: 20120416, end: 20120920

REACTIONS (9)
  - Microcephaly [None]
  - Failure to thrive [None]
  - Weight gain poor [None]
  - Seborrhoeic dermatitis [None]
  - Developmental delay [None]
  - Caesarean section [None]
  - Foetal exposure during pregnancy [None]
  - Maternal drugs affecting foetus [None]
  - Hypotonia neonatal [None]

NARRATIVE: CASE EVENT DATE: 20120920
